FAERS Safety Report 5338049-7 (Version None)
Quarter: 2007Q2

REPORT INFORMATION
  Report Type: 
  Country: None (occurrence: None)
  Receive Date: 20070327
  Receipt Date: 20070111
  Transmission Date: 20071010
  Serious: Yes (Hospitalization)
  Sender: FDA-Public Use
  Company Number: 235095

PATIENT
  Age: 46 Year
  Sex: Female
  Weight: 60.8 kg

DRUGS (2)
  1. AVASTIN [Suspect]
     Indication: BREAST CANCER
     Dosage: 15 MG/KG, Q3W, INTRAVENOUS
     Dates: start: 20050814
  2. TAXOTERE [Concomitant]

REACTIONS (1)
  - EPISTAXIS [None]
